FAERS Safety Report 20548494 (Version 2)
Quarter: 2022Q1

REPORT INFORMATION
  Report Type: Spontaneous
  Country: CH (occurrence: CH)
  Receive Date: 20220303
  Receipt Date: 20220317
  Transmission Date: 20220423
  Serious: Yes (Other)
  Sender: FDA-Public Use
  Company Number: CH-TEVA-2022-CH-2011623

PATIENT
  Age: 62 Year
  Sex: Female

DRUGS (4)
  1. CARBOPLATIN [Suspect]
     Active Substance: CARBOPLATIN
     Indication: Pleural mesothelioma malignant
     Route: 065
  2. PEMBROLIZUMAB [Suspect]
     Active Substance: PEMBROLIZUMAB
     Indication: Pleural mesothelioma malignant
     Dosage: INITIAL DOSE NOT STATED
     Route: 065
  3. PEMBROLIZUMAB [Suspect]
     Active Substance: PEMBROLIZUMAB
     Dosage: 15 CYCLES (RE-INITIATED DUE TO RIB METASTASIS)
     Route: 065
  4. PEMETREXED [Concomitant]
     Active Substance: PEMETREXED
     Indication: Pleural mesothelioma malignant
     Route: 065

REACTIONS (3)
  - Immune-mediated enterocolitis [Unknown]
  - Mononeuropathy multiplex [Recovering/Resolving]
  - Vasculitis [Recovering/Resolving]
